FAERS Safety Report 15386542 (Version 1)
Quarter: 2018Q3

REPORT INFORMATION
  Report Type: Spontaneous
  Country: US (occurrence: US)
  Receive Date: 20180914
  Receipt Date: 20180914
  Transmission Date: 20181010
  Serious: Yes (Other)
  Sender: FDA-Public Use
  Company Number: US-PFIZER INC-2018369287

PATIENT
  Sex: Male

DRUGS (3)
  1. METHAMPHETAMINE HCL [Suspect]
     Active Substance: METHAMPHETAMINE HYDROCHLORIDE
     Dosage: UNK
  2. KLONOPIN [Suspect]
     Active Substance: CLONAZEPAM
     Dosage: UNK
  3. NEURONTIN [Suspect]
     Active Substance: GABAPENTIN
     Dosage: UNK

REACTIONS (2)
  - Aggression [Unknown]
  - Intentional product misuse [Unknown]
